FAERS Safety Report 6473143-9 (Version None)
Quarter: 2009Q4

REPORT INFORMATION
  Report Type: 
  Country: None (occurrence: None)
  Receive Date: 20091204
  Receipt Date: 20080708
  Transmission Date: 20100525
  Serious: Yes (Other)
  Sender: FDA-Public Use
  Company Number: US-ELI_LILLY_AND_COMPANY-US200806004873

PATIENT
  Sex: Female

DRUGS (11)
  1. CYMBALTA [Suspect]
     Indication: DEPRESSION
     Dosage: 60 MG, 2/D
     Dates: start: 20070223
  2. TOPAMAX [Concomitant]
     Indication: PARAESTHESIA
  3. VISTARIL [Concomitant]
     Dosage: 1 D/F, 4/D
  4. ASPIRIN [Concomitant]
     Dosage: 81 MG, DAILY (1/D)
     Dates: end: 20080101
  5. LORTAB [Concomitant]
  6. PRED FORTE [Concomitant]
  7. ISTALOL [Concomitant]
  8. COPAXONE [Concomitant]
     Dates: start: 20070701, end: 20080101
  9. ZANAFLEX [Concomitant]
     Indication: NECK PAIN
     Dosage: 1 D/F, AS NEEDED
  10. ZOCOR [Concomitant]
     Dosage: 1 D/F, EACH MORNING
  11. BENADRYL [Concomitant]
     Indication: INJECTION SITE PRURITUS

REACTIONS (5)
  - BREAST CANCER STAGE III [None]
  - DYSPNOEA [None]
  - MULTIPLE SCLEROSIS [None]
  - SWELLING [None]
  - WEIGHT INCREASED [None]
